FAERS Safety Report 8208315-6 (Version None)
Quarter: 2012Q1

REPORT INFORMATION
  Report Type: 
  Country: None (occurrence: None)
  Receive Date: 20120314
  Receipt Date: 20120312
  Transmission Date: 20120608
  Serious: Yes (Death, Hospitalization)
  Sender: FDA-Public Use
  Company Number: PHHY2012DO021919

PATIENT
  Age: 66 Year
  Sex: Male

DRUGS (2)
  1. CLOPIDOGREL [Concomitant]
  2. DIOVAN HCT [Suspect]
     Indication: CARDIOMEGALY
     Dosage: 1 DF (160/25 MG), PER DAY
     Route: 048

REACTIONS (4)
  - DEATH [None]
  - INGUINAL HERNIA STRANGULATED [None]
  - DIARRHOEA [None]
  - HYPONATRAEMIA [None]
